FAERS Safety Report 26183347 (Version 1)
Quarter: 2025Q4

REPORT INFORMATION
  Report Type: Spontaneous
  Country: EU (occurrence: EU)
  Receive Date: 20251221
  Receipt Date: 20251221
  Transmission Date: 20260117
  Serious: Yes (Other)
  Sender: Teyro Labs
  Company Number: EU-TEYRO-2025-TY-000981

PATIENT
  Sex: Female

DRUGS (2)
  1. CARBOPLATIN [Suspect]
     Active Substance: CARBOPLATIN
     Indication: Triple negative breast cancer
     Dosage: AREA UNDER THE CURVE OF LONGITUDINAL CHANGE 2 (AUC2), DAYS 1 AND 8 OF A 21-CYCLE
     Route: 065
  2. GEMCITABINE [Suspect]
     Active Substance: GEMCITABINE
     Indication: Triple negative breast cancer
     Dosage: DAYS 1 AND 8 OF A 21-CYCLE EVERY 3 WEEKS
     Route: 065

REACTIONS (3)
  - Neoplasm progression [Unknown]
  - Condition aggravated [Unknown]
  - Off label use [Unknown]
